FAERS Safety Report 14474716 (Version 2)
Quarter: 2021Q2

REPORT INFORMATION
  Report Type: Spontaneous
  Country: CH (occurrence: CH)
  Receive Date: 20180201
  Receipt Date: 20210412
  Transmission Date: 20210716
  Serious: No
  Sender: FDA-Public Use
  Company Number: CH-JAZZ-2018-CH-002132

PATIENT

DRUGS (2)
  1. XYREM [Suspect]
     Active Substance: SODIUM OXYBATE
     Indication: SOMNOLENCE
     Dosage: TITRATED DOSE BETWEEN 3 G AND 9 G PER NIGHT
     Route: 048
  2. XYREM [Suspect]
     Active Substance: SODIUM OXYBATE
     Indication: PARKINSON^S DISEASE
     Dosage: FINAL DOSE OF MEAN MEDICATION WAS 4.8 G (1.5 G)
     Route: 048

REACTIONS (2)
  - Sleep apnoea syndrome [Not Recovered/Not Resolved]
  - Off label use [Unknown]
